FAERS Safety Report 8247755-6 (Version None)
Quarter: 2012Q1

REPORT INFORMATION
  Report Type: 
  Country: None (occurrence: None)
  Receive Date: 20120330
  Receipt Date: 20120320
  Transmission Date: 20120608
  Serious: Yes (Life-Threatening, Hospitalization)
  Sender: FDA-Public Use
  Company Number: FR-GLAXOSMITHKLINE-B0789721A

PATIENT
  Sex: Female

DRUGS (4)
  1. ALBUTEROL [Suspect]
     Indication: THREATENED LABOUR
     Route: 065
     Dates: start: 20111201, end: 20120113
  2. ADALAT [Suspect]
     Indication: THREATENED LABOUR
     Dosage: 3UNIT PER DAY
     Route: 048
     Dates: start: 20120113, end: 20120117
  3. CELESTONE [Suspect]
     Indication: PRENATAL CARE
     Dosage: 12MG PER DAY
     Route: 030
     Dates: start: 20120113, end: 20120114
  4. SPASFON [Concomitant]
     Dates: start: 20111201

REACTIONS (4)
  - ACUTE RESPIRATORY FAILURE [None]
  - PAINFUL RESPIRATION [None]
  - PULMONARY OEDEMA [None]
  - MATERNAL EXPOSURE DURING PREGNANCY [None]
